FAERS Safety Report 18808785 (Version 1)
Quarter: 2021Q1

REPORT INFORMATION
  Report Type: Spontaneous
  Country: US (occurrence: US)
  Receive Date: 20210129
  Receipt Date: 20210129
  Transmission Date: 20210419
  Serious: Yes (Death, Other)
  Sender: FDA-Public Use
  Company Number: US-GLAXOSMITHKLINE-US2021GSK016028

PATIENT
  Sex: Male

DRUGS (2)
  1. RANITIDINE. [Suspect]
     Active Substance: RANITIDINE
     Indication: ABDOMINAL DISCOMFORT
     Dosage: UNKNOWN AT THIS TIME, QD
     Route: 065
     Dates: start: 200101, end: 201201
  2. RANITIDINE. [Suspect]
     Active Substance: RANITIDINE
     Indication: ABDOMINAL DISCOMFORT
     Dosage: UNKNOWN AT THIS TIME, QD
     Route: 065
     Dates: start: 200101, end: 201201

REACTIONS (1)
  - Oesophageal carcinoma [Fatal]
